FAERS Safety Report 9462118 (Version 1)
Quarter: 2013Q3

REPORT INFORMATION
  Report Type: Spontaneous
  Country: US (occurrence: None)
  Receive Date: 20130815
  Receipt Date: 20130815
  Transmission Date: 20140515
  Serious: Yes (Hospitalization)
  Sender: FDA-Public Use
  Company Number: None

PATIENT
  Sex: Male

DRUGS (9)
  1. XARELTO [Suspect]
     Indication: ATRIAL FIBRILLATION
     Route: 048
  2. GLUCOSAMINE [Concomitant]
  3. SENNA [Concomitant]
  4. CALCIUM ABD VIT D [Concomitant]
  5. ATROVENT [Concomitant]
  6. COLACE [Concomitant]
  7. MVI [Concomitant]
  8. OMEPRAZOLE [Concomitant]
  9. VOLTAREN GEL [Concomitant]

REACTIONS (4)
  - Pneumonia [None]
  - Subdural haematoma [None]
  - Prothrombin time prolonged [None]
  - Activated partial thromboplastin time prolonged [None]
